FAERS Safety Report 5804184-X (Version None)
Quarter: 2008Q3

REPORT INFORMATION
  Report Type: 
  Country: None (occurrence: None)
  Receive Date: 20080709
  Receipt Date: 20080701
  Transmission Date: 20090109
  Serious: Yes (Life-Threatening, Hospitalization)
  Sender: FDA-Public Use
  Company Number: JP-JNJFOC-20070302851

PATIENT
  Sex: Female
  Weight: 75 kg

DRUGS (5)
  1. RISPERDAL [Suspect]
     Route: 048
  2. RISPERDAL [Suspect]
     Indication: SCHIZOPHRENIA
     Route: 048
  3. LENDORMIN [Concomitant]
     Indication: SCHIZOPHRENIA
     Route: 048
  4. MYSLEE [Concomitant]
     Route: 048
  5. MYSLEE [Concomitant]
     Indication: SCHIZOPHRENIA
     Dosage: 5-10 MG PER DAY
     Route: 048

REACTIONS (7)
  - DIABETIC COMA [None]
  - DIABETIC HYPERGLYCAEMIC COMA [None]
  - DIABETIC KETOACIDOSIS [None]
  - HYPONATRAEMIA [None]
  - PNEUMONIA [None]
  - PNEUMONIA ASPIRATION [None]
  - THIRST [None]
